FAERS Safety Report 23882922 (Version 3)
Quarter: 2024Q2

REPORT INFORMATION
  Report Type: Report from Study
  Country: GB (occurrence: GB)
  Receive Date: 20240522
  Receipt Date: 20240529
  Transmission Date: 20240715
  Serious: Yes (Other)
  Sender: FDA-Public Use
  Company Number: GB-002147023-NVSC2024GB105392

PATIENT
  Sex: Female

DRUGS (1)
  1. KESIMPTA [Suspect]
     Active Substance: OFATUMUMAB
     Indication: Multiple sclerosis
     Dosage: INJECT 20MG (ONE PEN) SUBCUTANEOUSLY ON WEEKS 0, 1, 2 AND 4 FOLLOWED BY ONCE MONTHLY DOSING THEREAFT
     Route: 058
     Dates: start: 202402

REACTIONS (4)
  - Lower respiratory tract infection [Unknown]
  - Nasopharyngitis [Unknown]
  - Accidental exposure to product [Unknown]
  - Needle issue [Unknown]
